FAERS Safety Report 23981155 (Version 1)
Quarter: 2024Q2

REPORT INFORMATION
  Report Type: Report from Study
  Country: MX (occurrence: MX)
  Receive Date: 20240617
  Receipt Date: 20240617
  Transmission Date: 20240716
  Serious: Yes (Hospitalization)
  Sender: FDA-Public Use
  Company Number: MX-Merck Healthcare KGaA-2024031065

PATIENT
  Age: 47 Year
  Sex: Male

DRUGS (1)
  1. CETUXIMAB [Suspect]
     Active Substance: CETUXIMAB
     Indication: Colorectal cancer
     Dosage: 885 MG, 2/M
     Route: 042
     Dates: start: 20240214

REACTIONS (7)
  - Pharyngeal mass [Recovering/Resolving]
  - Feeding disorder [Recovering/Resolving]
  - White blood cell count decreased [Recovering/Resolving]
  - Immunodeficiency [Recovering/Resolving]
  - Anaemia [Recovering/Resolving]
  - Skin burning sensation [Recovering/Resolving]
  - Decreased appetite [Recovering/Resolving]
